FAERS Safety Report 16693609 (Version 1)
Quarter: 2019Q3

REPORT INFORMATION
  Report Type: Spontaneous
  Country: US (occurrence: US)
  Receive Date: 20190812
  Receipt Date: 20190812
  Transmission Date: 20191004
  Serious: No
  Sender: FDA-Public Use
  Company Number: US-AMNEAL PHARMACEUTICALS-2018AMN00406

PATIENT
  Sex: Female

DRUGS (2)
  1. SUMATRIPTAN SUCCINATE INJECTION [Concomitant]
     Active Substance: SUMATRIPTAN SUCCINATE
  2. TRAMADOL HYDROCHLORIDE. [Suspect]
     Active Substance: TRAMADOL HYDROCHLORIDE

REACTIONS (1)
  - Drug ineffective [Unknown]
